FAERS Safety Report 9953545 (Version 3)
Quarter: 2014Q2

REPORT INFORMATION
  Report Type: Report from Study
  Country: JP (occurrence: JP)
  Receive Date: 20140304
  Receipt Date: 20140429
  Transmission Date: 20141212
  Serious: Yes (Hospitalization)
  Sender: FDA-Public Use
  Company Number: JP-SA-THYM-1003881

PATIENT
  Age: 40 Year
  Sex: Female
  Weight: 39.6 kg

DRUGS (17)
  1. THYMOGLOBULINE [Suspect]
     Indication: KIDNEY TRANSPLANT REJECTION
     Dosage: UNK
     Route: 042
     Dates: start: 20130624, end: 20130626
  2. THYMOGLOBULINE [Suspect]
     Indication: KIDNEY TRANSPLANT REJECTION
     Route: 042
     Dates: start: 20130627, end: 20130627
  3. CYCLOSPORINE [Suspect]
     Indication: IMMUNOSUPPRESSANT DRUG THERAPY
     Dosage: 20-120 MG PER DAY
     Route: 048
     Dates: start: 20130425
  4. MEDROL [Suspect]
     Indication: IMMUNOSUPPRESSANT DRUG THERAPY
     Dosage: 4-60 MG PER DAY
     Route: 048
     Dates: start: 20111021
  5. MIZORIBINE [Suspect]
     Indication: IMMUNOSUPPRESSANT DRUG THERAPY
     Dosage: DAILY DOSE 20-120 MG
     Route: 065
     Dates: start: 20130215, end: 20130424
  6. EVEROLIMUS [Suspect]
     Indication: IMMUNOSUPPRESSANT DRUG THERAPY
     Dosage: DAILY DOSE 0.5-1.0 MG
     Route: 065
     Dates: start: 20130715
  7. MYCOPHENOLATE MOFETIL [Suspect]
     Indication: IMMUNOSUPPRESSANT DRUG THERAPY
     Dosage: DAILY DOSE 500-1000 MG
     Route: 065
     Dates: start: 20130823
  8. SOL-MELCORT [Concomitant]
     Indication: PROPHYLAXIS
     Dates: start: 20130624, end: 20130627
  9. CALONAL [Concomitant]
     Indication: PROPHYLAXIS
     Route: 048
     Dates: start: 20130624, end: 20130627
  10. DIPHENHYDRAMINE [Concomitant]
     Indication: PROPHYLAXIS
     Route: 048
     Dates: start: 20130624, end: 20130627
  11. NIFEDIPINE [Concomitant]
     Indication: HYPERTENSION
     Route: 048
     Dates: start: 20130411
  12. METHYCOBAL [Concomitant]
     Indication: NEUROPATHY PERIPHERAL
     Route: 048
     Dates: start: 20130301, end: 20131213
  13. FAMOTIDINE [Concomitant]
     Indication: GASTRIC ULCER
     Route: 048
     Dates: start: 20120330
  14. FUROSEMIDE [Concomitant]
     Indication: HYPERTENSION
     Route: 048
     Dates: start: 20130501, end: 20131219
  15. ETIZOLAM [Concomitant]
     Indication: INSOMNIA
     Route: 048
     Dates: start: 20131021
  16. THYRADIN S [Concomitant]
     Indication: HYPERTHYROIDISM
     Route: 048
     Dates: start: 20130925
  17. CORTICOSTEROIDS [Concomitant]
     Dates: start: 20130821, end: 20130823

REACTIONS (2)
  - Pneumonia [Recovering/Resolving]
  - Pancreatitis acute [Recovering/Resolving]
